FAERS Safety Report 9553425 (Version 1)
Quarter: 2013Q3

REPORT INFORMATION
  Report Type: Report from Study
  Country: US (occurrence: US)
  Receive Date: 20130925
  Receipt Date: 20130925
  Transmission Date: 20140515
  Serious: Yes (Hospitalization)
  Sender: FDA-Public Use
  Company Number: US-US-EMD SERONO, INC.-7238788

PATIENT
  Sex: Female

DRUGS (1)
  1. REBIF [Suspect]
     Indication: MULTIPLE SCLEROSIS
     Route: 058
     Dates: start: 20130723

REACTIONS (4)
  - Heart rate decreased [Recovering/Resolving]
  - Bronchitis [Recovering/Resolving]
  - Multiple sclerosis relapse [Recovering/Resolving]
  - Injection site pain [Not Recovered/Not Resolved]
